FAERS Safety Report 8600336-4 (Version None)
Quarter: 2012Q3

REPORT INFORMATION
  Report Type: 
  Country: None (occurrence: None)
  Receive Date: 20120817
  Receipt Date: 20120803
  Transmission Date: 20120928
  Serious: Yes (Hospitalization)
  Sender: FDA-Public Use
  Company Number: IT-RANBAXY-2012RR-59012

PATIENT
  Sex: Male

DRUGS (2)
  1. NAPROXEN [Suspect]
     Indication: PHARYNGITIS
     Dosage: ONE DOSAGE UNIT (TOTAL)
     Route: 048
     Dates: start: 20120703, end: 20120703
  2. ESOMEPRAZOLE SODIUM [Suspect]
     Indication: PHARYNGITIS
     Dosage: ONE DOSAGE UNIT (TOTAL)
     Route: 065
     Dates: start: 20120703, end: 20120703

REACTIONS (2)
  - RASH [None]
  - PYREXIA [None]
